FAERS Safety Report 9000015 (Version 2)
Quarter: 2013Q2

REPORT INFORMATION
  Report Type: Spontaneous
  Country: GB (occurrence: GB)
  Receive Date: 20130102
  Receipt Date: 20130626
  Transmission Date: 20140414
  Serious: Yes (Other)
  Sender: FDA-Public Use
  Company Number: GB-PFIZER INC-2012331966

PATIENT
  Age: 46 Year
  Sex: Female
  Weight: 82.55 kg

DRUGS (2)
  1. AMLODIPINE BESILATE [Suspect]
     Indication: HYPERTENSION
     Dosage: 5 MG, UNK
     Route: 048
     Dates: start: 201204
  2. AMLODIPINE BESILATE [Suspect]
     Dosage: 10 MG, UNK
     Route: 048
     Dates: start: 20121101, end: 20121203

REACTIONS (8)
  - Depressed mood [Not Recovered/Not Resolved]
  - Dissociation [Not Recovered/Not Resolved]
  - Confusional state [Recovering/Resolving]
  - Memory impairment [Not Recovered/Not Resolved]
  - Fatigue [Not Recovered/Not Resolved]
  - Feeling abnormal [Unknown]
  - Lethargy [Unknown]
  - Disturbance in attention [Unknown]
